FAERS Safety Report 10662921 (Version 1)
Quarter: 2014Q4

REPORT INFORMATION
  Report Type: Spontaneous
  Country: US (occurrence: US)
  Receive Date: 20141218
  Receipt Date: 20141218
  Transmission Date: 20150529
  Serious: No
  Sender: FDA-Public Use
  Company Number: US-GLAXOSMITHKLINE-A1077437A

PATIENT

DRUGS (1)
  1. COREG CR [Suspect]
     Active Substance: CARVEDILOL PHOSPHATE
     Indication: CARDIOVASCULAR DISORDER
     Dosage: 20 MG, UNKNOWN DOSING
     Route: 065
     Dates: start: 20080205

REACTIONS (2)
  - Malaise [Unknown]
  - Cardiac disorder [Unknown]
